FAERS Safety Report 23234267 (Version 1)
Quarter: 2023Q4

REPORT INFORMATION
  Report Type: Spontaneous
  Country: US (occurrence: None)
  Receive Date: 20231124
  Receipt Date: 20231124
  Transmission Date: 20240110
  Serious: Yes (Other)
  Sender: FDA-Public Use
  Company Number: None

PATIENT
  Sex: Male

DRUGS (6)
  1. PULMOZYME [Suspect]
     Active Substance: DORNASE ALFA
     Indication: Cystic fibrosis
     Dosage: OTHER QUANTITY : 2.5MG/2.5ML;?FREQUENCY : DAILY;?INHALE 1 VIAL ( 2.5 ML) VIA NEBULIZER ONCE DAILY?
     Route: 055
     Dates: start: 20210702
  2. CYPROHEPTAD [Concomitant]
  3. MULTIVITAMIN CHW CHILDREN [Concomitant]
  4. TRIKAFTA [Concomitant]
     Active Substance: ELEXACAFTOR\IVACAFTOR\TEZACAFTOR
  5. URSODIOL [Concomitant]
     Active Substance: URSODIOL
  6. ZENPEP [Concomitant]
     Active Substance: PANCRELIPASE AMYLASE\PANCRELIPASE LIPASE\PANCRELIPASE PROTEASE

REACTIONS (2)
  - COVID-19 [None]
  - Product dose omission in error [None]
